FAERS Safety Report 8268993-2 (Version None)
Quarter: 2012Q2

REPORT INFORMATION
  Report Type: 
  Country: None (occurrence: None)
  Receive Date: 20120409
  Receipt Date: 20120329
  Transmission Date: 20120825
  Serious: Yes (Hospitalization)
  Sender: FDA-Public Use
  Company Number: US-JNJFOC-20120400965

PATIENT
  Sex: Male
  Weight: 17.7 kg

DRUGS (11)
  1. HYDROCORTISONE [Concomitant]
  2. MULTI-VITAMINS [Concomitant]
  3. NITAZOXANIDE [Concomitant]
  4. MESALAMINE [Suspect]
     Indication: PRODUCT USED FOR UNKNOWN INDICATION
  5. METHOTREXATE [Suspect]
     Indication: PRODUCT USED FOR UNKNOWN INDICATION
  6. LANSOPRAZOLE [Concomitant]
  7. ANTIBIOTICS FOR IBD [Concomitant]
  8. FOLIC ACID [Concomitant]
  9. BENADRYL [Concomitant]
  10. REMICADE [Suspect]
     Indication: INFLAMMATORY BOWEL DISEASE
     Route: 042
     Dates: start: 20110611
  11. PEPTAMEN [Concomitant]

REACTIONS (1)
  - IMPETIGO [None]
